FAERS Safety Report 15498262 (Version 4)
Quarter: 2019Q1

REPORT INFORMATION
  Report Type: Report from Study
  Country: CA (occurrence: CA)
  Receive Date: 20181015
  Receipt Date: 20190220
  Transmission Date: 20190417
  Serious: Yes (Hospitalization)
  Sender: FDA-Public Use
  Company Number: CA-ROCHE-2197811

PATIENT
  Age: 58 Year
  Sex: Female

DRUGS (4)
  1. ALECENSARO [Suspect]
     Active Substance: ALECTINIB
     Indication: NON-SMALL CELL LUNG CANCER
     Dosage: THERAPY INTERRUPTED FOR 2 WEEKS
     Route: 048
     Dates: start: 20180828, end: 2018
  2. ALECENSARO [Suspect]
     Active Substance: ALECTINIB
     Route: 048
     Dates: start: 201810
  3. ALECENSARO [Suspect]
     Active Substance: ALECTINIB
     Dosage: DOSE REDUCED
     Route: 048
     Dates: start: 201812
  4. ALECENSARO [Suspect]
     Active Substance: ALECTINIB
     Dosage: THERAPY RESTARTED, DOSE AND FREQUENCY UNKNOWN
     Route: 048
     Dates: start: 2018

REACTIONS (9)
  - Radiation injury [Unknown]
  - Asthenia [Recovering/Resolving]
  - Fatigue [Unknown]
  - Skin discolouration [Unknown]
  - Fatigue [Recovering/Resolving]
  - Dehydration [Recovering/Resolving]
  - Nausea [Recovering/Resolving]
  - Decreased appetite [Recovering/Resolving]
  - Asthenia [Unknown]

NARRATIVE: CASE EVENT DATE: 201809
